FAERS Safety Report 16350963 (Version 2)
Quarter: 2019Q3

REPORT INFORMATION
  Report Type: Other
  Country: SE (occurrence: SE)
  Receive Date: 20190524
  Receipt Date: 20190707
  Transmission Date: 20191004
  Serious: Yes (Disabling, Other)
  Sender: FDA-Public Use
  Company Number: SE-CELLTRION INC.-2019SE021198

PATIENT

DRUGS (1)
  1. RITUXIMAB (UNKNOWN) [Suspect]
     Active Substance: RITUXIMAB
     Indication: SECONDARY PROGRESSIVE MULTIPLE SCLEROSIS
     Dosage: 500 MG, TWICE A YEAR
     Route: 042
     Dates: start: 201709, end: 201904

REACTIONS (10)
  - Condition aggravated [Unknown]
  - Disease progression [Unknown]
  - Balance disorder [Unknown]
  - Speech disorder [Unknown]
  - Bladder disorder [Unknown]
  - Drug ineffective [Unknown]
  - Brain stem syndrome [Not Recovered/Not Resolved]
  - Secondary progressive multiple sclerosis [Unknown]
  - Oropharyngeal pain [Unknown]
  - Product use in unapproved indication [Unknown]
